FAERS Safety Report 14372151 (Version 2)
Quarter: 2018Q1

REPORT INFORMATION
  Report Type: Spontaneous
  Country: US (occurrence: US)
  Receive Date: 20180110
  Receipt Date: 20180118
  Transmission Date: 20180509
  Serious: Yes (Other)
  Sender: FDA-Public Use
  Company Number: US-JNJFOC-20180108621

PATIENT
  Sex: Female
  Weight: 63.5 kg

DRUGS (1)
  1. TOPAMAX [Suspect]
     Active Substance: TOPIRAMATE
     Indication: MIGRAINE PROPHYLAXIS
     Dosage: THREE IN THE MORNING AND THREE AT NIGHT
     Route: 048
     Dates: start: 2002, end: 2017

REACTIONS (6)
  - Migraine [Not Recovered/Not Resolved]
  - Withdrawal syndrome [Unknown]
  - Product availability issue [Unknown]
  - Cardiac flutter [Not Recovered/Not Resolved]
  - Insomnia [Not Recovered/Not Resolved]
  - Drug dose omission [Unknown]

NARRATIVE: CASE EVENT DATE: 2017
